FAERS Safety Report 16025748 (Version 1)
Quarter: 2019Q1

REPORT INFORMATION
  Report Type: Spontaneous
  Country: IT (occurrence: IT)
  Receive Date: 20190302
  Receipt Date: 20190302
  Transmission Date: 20190418
  Serious: Yes (Death, Hospitalization)
  Sender: FDA-Public Use
  Company Number: IT-ACCORD-108870

PATIENT
  Age: 17 Year
  Sex: Female

DRUGS (7)
  1. AMPHOTERICIN B. [Suspect]
     Active Substance: AMPHOTERICIN B
     Indication: ANTIFUNGAL TREATMENT
     Route: 065
  2. TACROLIMUS. [Suspect]
     Active Substance: TACROLIMUS
     Indication: LIVER TRANSPLANT
     Dosage: TWICE DAILY
     Route: 048
  3. ACETYLSALICYLIC ACID [Concomitant]
     Active Substance: ASPIRIN
     Indication: ANTIPLATELET THERAPY
     Route: 048
  4. AMPICILLIN SODIUM/SULBACTAM SODIUM [Concomitant]
     Indication: ANTIBIOTIC PROPHYLAXIS
     Route: 065
  5. FLUCONAZOLE. [Concomitant]
     Active Substance: FLUCONAZOLE
     Indication: ANTIFUNGAL PROPHYLAXIS
     Route: 042
  6. METHYLPREDNISOLONE. [Suspect]
     Active Substance: METHYLPREDNISOLONE
     Indication: IMMUNOSUPPRESSANT DRUG THERAPY
     Dosage: POST-OPERATIVELY, ALSO RECEIVED 10 MG/KG BY 0THER ROUTE OF ADMINISTRATION.
     Route: 040
  7. HEPARIN [Concomitant]
     Active Substance: HEPARIN SODIUM
     Indication: ANTICOAGULANT THERAPY
     Dosage: 10 U/KG/H
     Route: 041

REACTIONS (8)
  - Sepsis [Fatal]
  - Enterococcal infection [Fatal]
  - Staphylococcal infection [Fatal]
  - Proteus infection [Fatal]
  - Candida infection [Unknown]
  - Shock haemorrhagic [Fatal]
  - Infective aneurysm [Fatal]
  - Arterial rupture [Unknown]
